FAERS Safety Report 9738416 (Version 2)
Quarter: 2014Q2

REPORT INFORMATION
  Report Type: Report from Study
  Country: BR (occurrence: BR)
  Receive Date: 20131208
  Receipt Date: 20140401
  Transmission Date: 20141212
  Serious: Yes (Hospitalization)
  Sender: FDA-Public Use
  Company Number: BR-ROCHE-1315221

PATIENT
  Sex: Female
  Weight: 84 kg

DRUGS (7)
  1. MABTHERA [Suspect]
     Indication: RHEUMATOID ARTHRITIS
     Dosage: DATE OF LATEST INFUSION WAS ON 15/FEB/2014
     Route: 065
     Dates: start: 20130410
  2. PRELONE [Concomitant]
     Route: 065
  3. LOSARTAN [Concomitant]
     Route: 065
  4. OMEPRAZOLE [Concomitant]
     Route: 065
  5. ACECLOFENAC [Concomitant]
     Route: 065
  6. VENLAFAXINE [Concomitant]
     Route: 065
  7. FOLIC ACID [Concomitant]
     Route: 065

REACTIONS (2)
  - Spinal disorder [Unknown]
  - Intervertebral disc protrusion [Recovering/Resolving]
